FAERS Safety Report 9259982 (Version 3)
Quarter: 2013Q4

REPORT INFORMATION
  Report Type: Spontaneous
  Country: DE (occurrence: DE)
  Receive Date: 20130429
  Receipt Date: 20131209
  Transmission Date: 20140711
  Serious: Yes (Hospitalization, Other)
  Sender: FDA-Public Use
  Company Number: DE-UCBSA-080634

PATIENT
  Age: 63 Year
  Sex: Female

DRUGS (29)
  1. VIMPAT [Suspect]
     Dosage: 200 MG 2 UNITS
  2. VIMPAT [Suspect]
     Dosage: DOSE :300 MG
  3. KEPPRA [Suspect]
     Indication: EPILEPSY
     Dosage: 1 GM
     Route: 048
     Dates: start: 2012
  4. KEPPRA [Suspect]
     Indication: EPILEPSY
     Dosage: DAILY DOSE : 3 GM
     Route: 048
     Dates: end: 201301
  5. KEPPRA [Suspect]
     Indication: EPILEPSY
     Dosage: 1000 MG UNIT:4 (DAILY DOSE OF 4000 MG)
     Route: 048
     Dates: start: 20130121, end: 20130211
  6. KEPPRA [Suspect]
     Indication: EPILEPSY
     Dosage: DAILY DOSE : 3500 MG
     Route: 048
     Dates: start: 201302
  7. LEVETIRACETAM [Suspect]
     Route: 042
     Dates: start: 2012, end: 2012
  8. LAMOTRIGIN [Suspect]
     Dosage: DOSE 75 MG UNIT 2 * 1/2
  9. RANITIDIN [Concomitant]
     Indication: PROPHYLAXIS AGAINST GASTROINTESTINAL ULCER
     Route: 048
  10. L THYROXIN [Concomitant]
     Indication: HYPOTHYROIDISM
     Route: 048
  11. AMLODIPIN [Concomitant]
     Indication: HYPERTENSION
     Route: 048
  12. METOPROLOL [Concomitant]
     Indication: HYPERTENSION
     Route: 048
  13. HCT [Concomitant]
     Indication: HYPERTENSION
     Route: 048
  14. PROPOFOL [Concomitant]
     Dates: end: 2013
  15. TAVOR [Concomitant]
  16. TAVOR [Concomitant]
     Dosage: DOSE REDUCED
  17. SPIRIVA [Concomitant]
     Dosage: CAPS
  18. BIFITERAL [Concomitant]
     Dosage: 10 ML
  19. PANTOZOL [Concomitant]
     Dosage: 40 MG
  20. MST [Concomitant]
     Dosage: 20 MG
  21. NEURONTIN [Concomitant]
     Dosage: 100 MG
  22. CIRCADIN [Concomitant]
  23. MSD [Concomitant]
     Dosage: 30 MG
  24. AMITRIPTYLINE [Concomitant]
  25. MOXONIDINE [Concomitant]
     Dosage: 0.3 MG
  26. BUDESONIDE [Concomitant]
     Dosage: 1-0-1 PUFF
  27. BERODUAL [Concomitant]
     Dosage: 1-0-1
  28. CANDESARTAN [Concomitant]
     Dosage: 16 MG, 1-0-1
  29. LORAZEPAM [Concomitant]

REACTIONS (15)
  - Convulsion [Recovered/Resolved]
  - Respiratory failure [Unknown]
  - Electroencephalogram abnormal [Recovered/Resolved]
  - Encephalopathy [Recovering/Resolving]
  - Blindness cortical [Unknown]
  - Status epilepticus [Unknown]
  - Brain oedema [Unknown]
  - Aphasia [Unknown]
  - Hypertension [Unknown]
  - Cerebrovascular accident [Unknown]
  - Visual impairment [Unknown]
  - Anaemia [Unknown]
  - Hypokalaemia [Unknown]
  - Hypoglycaemia [Unknown]
  - Overdose [Unknown]
